FAERS Safety Report 9116856 (Version 1)
Quarter: 2013Q1

REPORT INFORMATION
  Report Type: Spontaneous
  Country: CL (occurrence: CL)
  Receive Date: 20130225
  Receipt Date: 20130225
  Transmission Date: 20140127
  Serious: Yes (Other)
  Sender: FDA-Public Use
  Company Number: PHHY2013CL014130

PATIENT
  Sex: Female

DRUGS (2)
  1. ACLASTA [Suspect]
     Dosage: YEARLY
     Route: 042
     Dates: start: 201202
  2. CALCIUM [Concomitant]

REACTIONS (2)
  - Vocal cord disorder [Unknown]
  - Aphonia [Unknown]
